FAERS Safety Report 16232125 (Version 2)
Quarter: 2019Q3

REPORT INFORMATION
  Report Type: Spontaneous
  Country: IT (occurrence: IT)
  Receive Date: 20190424
  Receipt Date: 20190712
  Transmission Date: 20191004
  Serious: Yes (Life-Threatening, Hospitalization, Other)
  Sender: FDA-Public Use
  Company Number: IT-TOLMAR, INC.-2019IT003986

PATIENT

DRUGS (8)
  1. ELIGARD [Suspect]
     Active Substance: LEUPROLIDE ACETATE
     Indication: PRODUCT USED FOR UNKNOWN INDICATION
     Dosage: UNK, UNK
     Route: 050
  2. GONADOTROPIN [Suspect]
     Active Substance: CHORIOGONADOTROPIN ALFA
     Indication: LIBIDO DECREASED
     Dosage: UNK, FOR ABOUT 2 YEARS
     Route: 065
     Dates: start: 2015, end: 2016
  3. IBUPROFEN. [Suspect]
     Active Substance: IBUPROFEN
     Indication: BACK PAIN
     Dosage: UNK, UNK
     Route: 065
     Dates: start: 2014, end: 2015
  4. MESTEROLONE [Suspect]
     Active Substance: MESTEROLONE
     Indication: LIBIDO DECREASED
     Dosage: UNK, FOR ABOUT 2 YEARS
     Route: 065
     Dates: start: 2015, end: 2016
  5. CREATINE [Suspect]
     Active Substance: CREATINE
     Indication: PRODUCT USED FOR UNKNOWN INDICATION
     Dosage: UNK, 7 DAYS PER MONTH
     Route: 065
  6. STANOZOLOL [Suspect]
     Active Substance: STANOZOLOL
     Indication: PRODUCT USED FOR UNKNOWN INDICATION
     Dosage: 2 MG/KG, UNK
     Route: 042
  7. TESTOSTERONE ENANTATE [Suspect]
     Active Substance: TESTOSTERONE
     Indication: PRODUCT USED FOR UNKNOWN INDICATION
     Dosage: 500 MG, ONCE WEEKLY
     Route: 030
     Dates: start: 201605, end: 201606
  8. IBUPROFEN. [Suspect]
     Active Substance: IBUPROFEN
     Indication: PAIN IN EXTREMITY
     Dosage: UNK, UNK
     Route: 065

REACTIONS (14)
  - Hypokinesia [Recovered/Resolved]
  - Polyuria [Recovering/Resolving]
  - Nephrotic syndrome [Recovering/Resolving]
  - Nephropathy toxic [Recovering/Resolving]
  - Anaemia [Unknown]
  - Hepatic steatosis [Unknown]
  - Left ventricular hypertrophy [Unknown]
  - End stage renal disease [Recovering/Resolving]
  - Focal segmental glomerulosclerosis [Recovering/Resolving]
  - Chronic kidney disease [Recovering/Resolving]
  - Drug abuse [Recovering/Resolving]
  - Azoospermia [Unknown]
  - Glomerulonephritis [Recovering/Resolving]
  - Hypertension [Recovering/Resolving]

NARRATIVE: CASE EVENT DATE: 201607
